FAERS Safety Report 6212019-9 (Version None)
Quarter: 2009Q2

REPORT INFORMATION
  Report Type: 
  Country: None (occurrence: None)
  Receive Date: 20090602
  Receipt Date: 20090520
  Transmission Date: 20091009
  Serious: Yes (Other)
  Sender: FDA-Public Use
  Company Number: US-PFIZER INC-2009217264

PATIENT
  Sex: Female

DRUGS (2)
  1. XALATAN [Suspect]
  2. KETOROLAC TROMETHAMINE [Suspect]

REACTIONS (2)
  - BLINDNESS UNILATERAL [None]
  - FUCHS' SYNDROME [None]
